FAERS Safety Report 9248998 (Version 1)
Quarter: 2013Q1

REPORT INFORMATION
  Report Type: Spontaneous
  Country: US (occurrence: None)
  Receive Date: 20130305
  Receipt Date: 20130305
  Transmission Date: 20140127
  Serious: Yes (Hospitalization)
  Sender: FDA-Public Use
  Company Number: 163-21880-12091044

PATIENT
  Age: 74 Year
  Sex: Male
  Weight: 78.93 kg

DRUGS (8)
  1. REVLIMID [Suspect]
     Indication: PLASMA CELL MYELOMA
     Dosage: 21 IN 28 D
     Route: 048
     Dates: start: 20120206
  2. DEXAMETHASONE(DEXAMETHASONE)(UNKNOWN) [Concomitant]
  3. ZOFRAN(ONDANSETRON HYDROCHLORIDE)(UNKNOWN) [Concomitant]
  4. HYDROCODONE/APAP(VICODIN)(UNKNOWN) [Concomitant]
  5. LYRICA(PREGABALIN)(UNKNOWN) [Concomitant]
  6. VITAMIN D(ERGOCALCIFEROL) (UNKNOWN) [Concomitant]
  7. MUCINEX(GUAIFENESIN)(UNKNOWN) [Concomitant]
  8. ANTIHYPERTENSIVES(ANTIHYPERTENSIVES)(UNKNOWN) [Concomitant]

REACTIONS (2)
  - Hypotension [None]
  - Loss of consciousness [None]
